FAERS Safety Report 15496268 (Version 1)
Quarter: 2018Q4

REPORT INFORMATION
  Report Type: Other
  Country: CN (occurrence: CN)
  Receive Date: 20181012
  Receipt Date: 20181012
  Transmission Date: 20190205
  Serious: Yes (Other)
  Sender: FDA-Public Use
  Company Number: CN-ARALEZ PHARMACEUTICALS R+D INC.-2018-ARA-002558

PATIENT
  Sex: Female
  Weight: 48 kg

DRUGS (2)
  1. METOPROLOL SUCCINATE. [Suspect]
     Active Substance: METOPROLOL SUCCINATE
     Indication: ARRHYTHMIA
     Dosage: 1 DF, QD
     Route: 048
     Dates: start: 20180606, end: 20180616
  2. PANAX GINSENG EXTRACT [Concomitant]
     Indication: ARRHYTHMIA
     Dosage: 1 DF, TID
     Route: 048
     Dates: start: 20180606, end: 20180616

REACTIONS (1)
  - Ventricular arrhythmia [Recovered/Resolved]
